FAERS Safety Report 5956986-7 (Version None)
Quarter: 2008Q4

REPORT INFORMATION
  Report Type: 
  Country: None (occurrence: None)
  Receive Date: 20081118
  Receipt Date: 20080929
  Transmission Date: 20090506
  Serious: No
  Sender: FDA-Public Use
  Company Number: A0736752A

PATIENT
  Sex: Female

DRUGS (7)
  1. COREG CR [Suspect]
     Indication: LEFT VENTRICULAR DYSFUNCTION
     Dosage: 20MG PER DAY
     Route: 048
     Dates: start: 20070401
  2. COREG [Suspect]
     Indication: LEFT VENTRICULAR DYSFUNCTION
     Dosage: 12.5MG PER DAY
     Route: 048
     Dates: start: 20030101, end: 20070401
  3. TIKOSYN [Concomitant]
  4. COQ10 [Concomitant]
  5. ASPIRIN [Concomitant]
  6. VITAMIN [Concomitant]
  7. XANAX [Concomitant]

REACTIONS (5)
  - ANXIETY [None]
  - DEPRESSION [None]
  - EJECTION FRACTION ABNORMAL [None]
  - FEELING COLD [None]
  - PERIPHERAL COLDNESS [None]
